FAERS Safety Report 5446114-9 (Version None)
Quarter: 2007Q3

REPORT INFORMATION
  Report Type: 
  Country: None (occurrence: None)
  Receive Date: 20070907
  Receipt Date: 20070828
  Transmission Date: 20080115
  Serious: Yes (Life-Threatening)
  Sender: FDA-Public Use
  Company Number: US-AVENTIS-200715806US

PATIENT
  Sex: Male
  Weight: 90.45 kg

DRUGS (3)
  1. KETEK [Suspect]
     Dosage: DOSE: UNK
     Route: 048
  2. KETEK [Suspect]
     Dosage: DOSE: UNK
     Route: 048
     Dates: start: 20060101, end: 20060101
  3. UNKNOWN DRUG [Concomitant]

REACTIONS (17)
  - ALANINE AMINOTRANSFERASE INCREASED [None]
  - ANTINUCLEAR ANTIBODY POSITIVE [None]
  - ASCITES [None]
  - ASPARTATE AMINOTRANSFERASE INCREASED [None]
  - ASTHENIA [None]
  - BILIRUBIN CONJUGATED INCREASED [None]
  - CHROMATURIA [None]
  - DYSPNOEA [None]
  - FAECES PALE [None]
  - HEPATOTOXICITY [None]
  - JAUNDICE [None]
  - LIVER DISORDER [None]
  - NAUSEA [None]
  - PORTAL HYPERTENSION [None]
  - RECTAL HAEMORRHAGE [None]
  - SPLENOMEGALY [None]
  - VOMITING [None]
